FAERS Safety Report 12419916 (Version 1)
Quarter: 2016Q2

REPORT INFORMATION
  Report Type: Spontaneous
  Country: ES (occurrence: ES)
  Receive Date: 20160531
  Receipt Date: 20160531
  Transmission Date: 20160815
  Serious: Yes (Other)
  Sender: FDA-Public Use
  Company Number: ES-B.I. PHARMACEUTICALS,INC./RIDGEFIELD-2016-BI-33577BI

PATIENT
  Age: 64 Year
  Sex: Male

DRUGS (2)
  1. VIRAMUNE [Suspect]
     Active Substance: NEVIRAPINE
     Indication: HIV INFECTION
     Route: 065
  2. TENOFOVIR [Suspect]
     Active Substance: TENOFOVIR
     Indication: HIV INFECTION
     Route: 065

REACTIONS (6)
  - Hypercalciuria [Unknown]
  - Blood alkaline phosphatase increased [Not Recovered/Not Resolved]
  - Vitamin D decreased [Recovered/Resolved]
  - Lipoatrophy [Unknown]
  - Osteomalacia [Not Recovered/Not Resolved]
  - Hypophosphataemia [Not Recovered/Not Resolved]
